FAERS Safety Report 23751577 (Version 2)
Quarter: 2024Q2

REPORT INFORMATION
  Report Type: Spontaneous
  Country: US (occurrence: US)
  Receive Date: 20240417
  Receipt Date: 20240424
  Transmission Date: 20240716
  Serious: Yes (Hospitalization, Other)
  Sender: FDA-Public Use
  Company Number: US-PFIZER INC-PV202400048942

PATIENT
  Age: 42 Year
  Sex: Male

DRUGS (2)
  1. TESTOSTERONE CYPIONATE [Suspect]
     Active Substance: TESTOSTERONE CYPIONATE
     Indication: Hormone therapy
     Dosage: UNK (BOUGHT FROM AN ONLINE WEBSITE FOR THE PAST FEW MONTHS)
  2. COCAINE [Suspect]
     Active Substance: COCAINE
     Indication: Substance use
     Dosage: UNK

REACTIONS (5)
  - Prescription drug used without a prescription [Unknown]
  - Portal vein thrombosis [Recovering/Resolving]
  - Portal vein cavernous transformation [Recovering/Resolving]
  - Gastrointestinal haemorrhage [Recovering/Resolving]
  - Rectal haemorrhage [Recovering/Resolving]
